FAERS Safety Report 14680951 (Version 1)
Quarter: 2018Q1

REPORT INFORMATION
  Report Type: Spontaneous
  Country: US (occurrence: US)
  Receive Date: 20180324
  Receipt Date: 20180324
  Transmission Date: 20180509
  Serious: Yes (Hospitalization)
  Sender: FDA-Public Use
  Company Number: None

PATIENT
  Age: 49 Year
  Sex: Female
  Weight: 84 kg

DRUGS (2)
  1. DOXORUBICIN HYDROCHLORIDE. [Suspect]
     Active Substance: DOXORUBICIN HYDROCHLORIDE
     Dates: end: 20180313
  2. CYCLOPHOSPHAMIDE. [Suspect]
     Active Substance: CYCLOPHOSPHAMIDE
     Dates: end: 20180313

REACTIONS (13)
  - Neutropenia [None]
  - Catheter site infection [None]
  - Catheter site pain [None]
  - Tenderness [None]
  - Erythema [None]
  - Staphylococcus test positive [None]
  - Medical device site scab [None]
  - Culture wound positive [None]
  - Heart rate increased [None]
  - Catheter site haemorrhage [None]
  - Chills [None]
  - Pyrexia [None]
  - Oedema [None]

NARRATIVE: CASE EVENT DATE: 20180319
